FAERS Safety Report 4728498-X (Version None)
Quarter: 2005Q3

REPORT INFORMATION
  Report Type: 
  Country: None (occurrence: None)
  Receive Date: 20050729
  Receipt Date: 20041108
  Transmission Date: 20060218
  Serious: No
  Sender: FDA-Public Use
  Company Number: TAP2004Q01365

PATIENT
  Age: 2 Month
  Sex: Female
  Weight: 3.6 kg

DRUGS (2)
  1. ZANTAC [Suspect]
     Route: 048
  2. LASIX [Concomitant]
     Dates: start: 20040901

REACTIONS (1)
  - DRUG INEFFECTIVE [None]
